FAERS Safety Report 21134317 (Version 1)
Quarter: 2022Q3

REPORT INFORMATION
  Report Type: Other
  Country: US (occurrence: US)
  Receive Date: 20220726
  Receipt Date: 20220726
  Transmission Date: 20221027
  Serious: Yes (Hospitalization, Other)
  Sender: FDA-Public Use
  Company Number: US-HLS-202200919

PATIENT
  Age: 29 Year
  Sex: Male

DRUGS (5)
  1. CLOZAPINE [Suspect]
     Active Substance: CLOZAPINE
     Indication: Schizophrenia
     Dosage: STARTED ON 12.5 MG TWICE DAILY 8 DOSES, WHICH WAS FURTHER TITRATED AS FOLLOWS  25 MG TWICE DAILY 10
     Route: 065
  2. OLANZAPINE [Concomitant]
     Active Substance: OLANZAPINE
     Indication: Psychotic disorder
     Dosage: TITRATION: 10 MG DAILY 1 DOSE, 15 MG DAILY 10 DOSES, 20 MG DAILY 7 DOSES, 20 MG TWICE DAILY 24 DOSES
     Route: 065
  3. OLANZAPINE [Concomitant]
     Active Substance: OLANZAPINE
     Indication: Schizophrenia
     Dosage: TITRATION: 10 MG DAILY 1 DOSE, 15 MG DAILY 10 DOSES, 20 MG DAILY 7 DOSES, 20 MG TWICE DAILY 24 DOSES
     Route: 065
  4. HALOPERIDOL [Concomitant]
     Active Substance: HALOPERIDOL
     Indication: Psychotic disorder
     Dosage: 10 MG INJECTION AS NEEDED
     Route: 065
  5. LITHIUM [Concomitant]
     Active Substance: LITHIUM
     Indication: Psychotic disorder
     Dosage: 450 MG TWICE DAILY, 7 DAYS
     Route: 065

REACTIONS (22)
  - Myocarditis [Recovering/Resolving]
  - Cardiogenic shock [Recovering/Resolving]
  - C-reactive protein increased [Recovering/Resolving]
  - Blood creatine phosphokinase increased [Recovering/Resolving]
  - Dyspnoea [Recovering/Resolving]
  - Red blood cell sedimentation rate increased [Recovering/Resolving]
  - Pyrexia [Recovered/Resolved]
  - Cardiac failure [Recovering/Resolving]
  - Inflammatory marker increased [Recovering/Resolving]
  - Cardiac index decreased [Recovering/Resolving]
  - Cardiac output decreased [Recovering/Resolving]
  - Pulmonary arterial pressure [Recovering/Resolving]
  - Chest pain [Recovering/Resolving]
  - Hyponatraemia [Recovering/Resolving]
  - Pulmonary hypertension [Recovering/Resolving]
  - Eosinophilia [Recovering/Resolving]
  - N-terminal prohormone brain natriuretic peptide increased [Recovering/Resolving]
  - Troponin T increased [Recovering/Resolving]
  - Ventricular tachycardia [Recovering/Resolving]
  - Electrocardiogram QT prolonged [Recovering/Resolving]
  - Bundle branch block right [Recovering/Resolving]
  - Ventricular extrasystoles [Recovering/Resolving]
